FAERS Safety Report 4884849-7 (Version None)
Quarter: 2006Q1

REPORT INFORMATION
  Report Type: 
  Country: None (occurrence: None)
  Receive Date: 20060119
  Receipt Date: 20041026
  Transmission Date: 20060701
  Serious: Yes (Other)
  Sender: FDA-Public Use
  Company Number: FR-GLAXOSMITHKLINE-B0348964A

PATIENT
  Age: 29 Year
  Sex: Female

DRUGS (3)
  1. NARAMIG [Suspect]
     Indication: MIGRAINE
     Dosage: 2.5MG SEE DOSAGE TEXT
     Route: 048
     Dates: end: 20041026
  2. ASPIRIN [Concomitant]
     Indication: MIGRAINE
     Route: 048
  3. PARACETAMOL [Concomitant]
     Indication: MIGRAINE
     Route: 048

REACTIONS (2)
  - ABORTION SPONTANEOUS [None]
  - MEDICATION ERROR [None]
